FAERS Safety Report 5641344-5 (Version None)
Quarter: 2008Q1

REPORT INFORMATION
  Report Type: 
  Country: None (occurrence: None)
  Receive Date: 20080227
  Receipt Date: 20070615
  Transmission Date: 20080703
  Serious: No
  Sender: FDA-Public Use
  Company Number: A0656554A

PATIENT
  Age: 54 Year

DRUGS (1)
  1. NICORETTE (MINT) [Suspect]

REACTIONS (1)
  - INTENTIONAL DRUG MISUSE [None]
